FAERS Safety Report 12485465 (Version 1)
Quarter: 2016Q2

REPORT INFORMATION
  Report Type: Spontaneous
  Country: US (occurrence: US)
  Receive Date: 20160621
  Receipt Date: 20160621
  Transmission Date: 20160815
  Serious: No
  Sender: FDA-Public Use
  Company Number: US-SA-2015SA217330

PATIENT
  Sex: Female

DRUGS (4)
  1. CEREZYME [Suspect]
     Active Substance: IMIGLUCERASE
     Indication: GAUCHER^S DISEASE
     Dosage: DOSE:43.6 UNIT(S)/KILOGRAM BODYWEIGHT
     Route: 041
     Dates: start: 20000114
  2. FOLIC ACID. [Concomitant]
     Active Substance: FOLIC ACID
     Dates: start: 2015
  3. VITAMIN C [Concomitant]
     Active Substance: ASCORBIC ACID
     Dates: start: 2015
  4. PRENATAL VITAMINS [Concomitant]
     Active Substance: VITAMINS
     Dates: start: 2015

REACTIONS (1)
  - Exposure during pregnancy [Unknown]
